FAERS Safety Report 5118323-X (Version None)
Quarter: 2006Q4

REPORT INFORMATION
  Report Type: 
  Country: None (occurrence: None)
  Receive Date: 20061002
  Receipt Date: 20060918
  Transmission Date: 20070319
  Serious: Yes (Death, Hospitalization)
  Sender: FDA-Public Use
  Company Number: DE-NOVOPROD-257011

PATIENT
  Age: 75 Year
  Sex: Male
  Weight: 78 kg

DRUGS (10)
  1. LERCANIDIPINE [Concomitant]
  2. NOVOSEVEN [Suspect]
     Indication: CEREBRAL HAEMORRHAGE
     Dosage: 20 UG/KG, UNK
     Route: 042
     Dates: start: 20060914
  3. ASPIRIN [Concomitant]
     Dosage: 100 MG, QD
     Route: 048
  4. IRBESARTAN [Concomitant]
     Dosage: 150 MG, QD
     Route: 048
  5. METOPROLOL [Concomitant]
     Dosage: 95 MG, QD
     Route: 048
     Dates: start: 20060915, end: 20060924
  6. MOLSIDOMIN [Concomitant]
     Route: 048
  7. ISOSORBIDE DINITRATE [Concomitant]
     Dosage: 60 UNK, QD
     Route: 048
  8. MORPHIN                            /00036302/ [Concomitant]
     Dosage: 100 MG, QD
     Route: 042
     Dates: start: 20060917, end: 20060924
  9. ENOXAPARIN SODIUM [Concomitant]
     Dosage: 20 MG, QD
     Route: 058
     Dates: start: 20060919, end: 20060923
  10. ACTRAPHANE 30/70 [Concomitant]
     Dosage: UNK IU, QD
     Route: 058
     Dates: start: 20060918, end: 20060924

REACTIONS (2)
  - MYOCARDIAL INFARCTION [None]
  - SEPSIS [None]
